FAERS Safety Report 26192816 (Version 1)
Quarter: 2025Q4

REPORT INFORMATION
  Report Type: Spontaneous
  Country: EU (occurrence: EU)
  Receive Date: 20251223
  Receipt Date: 20251223
  Transmission Date: 20260117
  Serious: Yes (Death, Other)
  Sender: AMGEN
  Company Number: EU-AMGEN-PRTSP2025250031

PATIENT

DRUGS (1)
  1. ADALIMUMAB [Suspect]
     Active Substance: ADALIMUMAB
     Indication: Product used for unknown indication
     Dosage: UNK
     Route: 065

REACTIONS (6)
  - Death [Fatal]
  - Mesothelioma [Unknown]
  - Pain [Unknown]
  - Fatigue [Unknown]
  - Anxiety [Unknown]
  - Dyspnoea [Unknown]
